FAERS Safety Report 9932578 (Version 1)
Quarter: 2014Q1

REPORT INFORMATION
  Report Type: Spontaneous
  Country: US (occurrence: US)
  Receive Date: 20140228
  Receipt Date: 20140228
  Transmission Date: 20141002
  Serious: No
  Sender: FDA-Public Use
  Company Number: US-GLAXOSMITHKLINE-A1021922A

PATIENT
  Age: 47 Year
  Sex: Female

DRUGS (27)
  1. LAMICTAL [Suspect]
     Indication: DEPRESSION
     Dosage: 200MG PER DAY
     Route: 048
  2. VIIBRYD [Suspect]
     Indication: DEPRESSION
     Route: 048
     Dates: start: 2012
  3. NOVOLOG [Suspect]
     Indication: DIABETES MELLITUS
  4. LEVEMIR [Concomitant]
  5. GABAPENTIN [Concomitant]
  6. TEGRETOL [Concomitant]
  7. ENALAPRIL [Concomitant]
  8. DIAMOX [Concomitant]
  9. BOTOX [Concomitant]
  10. ASPIRIN [Concomitant]
  11. JANUVIA [Concomitant]
  12. METFORMIN [Concomitant]
  13. SIMVASTATIN [Concomitant]
  14. TRICOR [Concomitant]
  15. ZETIA [Concomitant]
  16. RITALIN [Concomitant]
  17. PROVIGIL [Concomitant]
  18. TOPAMAX [Concomitant]
  19. WELLBUTRIN [Concomitant]
  20. SPIRONOLACTONE [Concomitant]
  21. BUMEX [Concomitant]
  22. ASMANEX [Concomitant]
  23. PRO-AIR [Concomitant]
  24. FLEXERIL [Concomitant]
  25. NEXIUM [Concomitant]
  26. NAMENDA [Concomitant]
  27. RAZADYNE [Concomitant]

REACTIONS (1)
  - Confusional state [Not Recovered/Not Resolved]
